FAERS Safety Report 23829839 (Version 1)
Quarter: 2024Q2

REPORT INFORMATION
  Report Type: Spontaneous
  Country: US (occurrence: US)
  Receive Date: 20240508
  Receipt Date: 20240508
  Transmission Date: 20240716
  Serious: Yes (Other)
  Sender: FDA-Public Use
  Company Number: US-HIKMA PHARMACEUTICALS USA INC.-US-H14001-24-03646

PATIENT

DRUGS (2)
  1. ELIDEL [Suspect]
     Active Substance: PIMECROLIMUS
     Indication: Eczema
     Dosage: UNK
     Route: 065
  2. PREDNISONE [Suspect]
     Active Substance: PREDNISONE
     Indication: Eczema
     Dosage: UNK
     Route: 065

REACTIONS (9)
  - Alcoholism [Unknown]
  - Topical steroid withdrawal reaction [Unknown]
  - Skin irritation [Unknown]
  - Condition aggravated [Unknown]
  - Dermatitis [Unknown]
  - Anxiety [Unknown]
  - Pain [Unknown]
  - Depression [Unknown]
  - Intentional product misuse [Unknown]
